FAERS Safety Report 7757107-0 (Version None)
Quarter: 2011Q3

REPORT INFORMATION
  Report Type: 
  Country: None (occurrence: None)
  Receive Date: 20110916
  Receipt Date: 20110913
  Transmission Date: 20111222
  Serious: Yes (Hospitalization)
  Sender: FDA-Public Use
  Company Number: SE-PURDUE-GBR-2011-0008370

PATIENT
  Sex: Female

DRUGS (13)
  1. BUPRENORPHINE [Suspect]
     Indication: PRODUCT USED FOR UNKNOWN INDICATION
     Dosage: UNK
     Route: 062
     Dates: start: 20110201, end: 20110201
  2. TRIOBE                             /01079901/ [Concomitant]
  3. FLUNITRAZEPAM [Suspect]
     Indication: PRODUCT USED FOR UNKNOWN INDICATION
     Dosage: 5 MG, DAILY
     Route: 048
     Dates: end: 20110201
  4. POTASSIUM CHLORIDE [Concomitant]
     Dosage: 750 MG, UNK
  5. WARFARIN SODIUM [Concomitant]
     Dosage: 2.5 MG, UNK
  6. DIGOXIN BIOPHAUSIA [Concomitant]
     Dosage: 0.13 MG, UNK
  7. LEVOTHYROXINE SODIUM [Concomitant]
     Dosage: 25 MCG, UNK
  8. ACETAMINOPHEN [Concomitant]
     Dosage: 500 MG, UNK
  9. FELODIPINE [Concomitant]
  10. MOVICOL                            /01625101/ [Concomitant]
  11. FUROSEMIDE [Concomitant]
     Dosage: 60 MG, UNK
  12. NIFEREX                            /01214501/ [Concomitant]
     Dosage: 100 MG, UNK
  13. LAXOBERAL [Concomitant]
     Dosage: 7.5 UNK, UNK
     Route: 048

REACTIONS (3)
  - HALLUCINATION [None]
  - HYPOTHERMIA [None]
  - CONFUSIONAL STATE [None]
